FAERS Safety Report 24054509 (Version 4)
Quarter: 2024Q4

REPORT INFORMATION
  Report Type: Report from Study
  Country: US (occurrence: US)
  Receive Date: 20240705
  Receipt Date: 20241210
  Transmission Date: 20250115
  Serious: Yes (Other)
  Sender: UCB
  Company Number: US-UCBSA-2024033538

PATIENT
  Age: 15 Year
  Sex: Male
  Weight: 39 kg

DRUGS (2)
  1. FINTEPLA [Suspect]
     Active Substance: FENFLURAMINE
     Indication: Lennox-Gastaut syndrome
     Dosage: 3.6 MILLILITER, 2X/DAY (BID) BY MOUTH TWO TIMES DAILY
     Route: 048
     Dates: start: 20231026
  2. FINTEPLA [Suspect]
     Active Substance: FENFLURAMINE
     Dosage: 3.6 MILLILITER, 2X/DAY (BID) BY MOUTH TWO TIMES DAILY
     Route: 048
     Dates: start: 20231209

REACTIONS (4)
  - Mitral valve incompetence [Not Recovered/Not Resolved]
  - Right ventricular systolic pressure increased [Unknown]
  - Blood pressure decreased [Unknown]
  - Drug ineffective [Not Recovered/Not Resolved]

NARRATIVE: CASE EVENT DATE: 20231201
